FAERS Safety Report 18957704 (Version 1)
Quarter: 2021Q1

REPORT INFORMATION
  Report Type: Report from Study
  Country: CA (occurrence: CA)
  Receive Date: 20210302
  Receipt Date: 20210302
  Transmission Date: 20210420
  Serious: Yes (Death)
  Sender: FDA-Public Use
  Company Number: CA-PFIZER INC-2021213379

PATIENT

DRUGS (2)
  1. VANCOMYCIN HCL [Suspect]
     Active Substance: VANCOMYCIN HYDROCHLORIDE
     Indication: PNEUMONIA BACTERIAL
     Dosage: TREATMENT DURATION: LESS THAN 7 DAYS
  2. CEFTOBIPROLE [Suspect]
     Active Substance: CEFTOBIPROLE
     Indication: PNEUMONIA BACTERIAL
     Dosage: 500 MG, 3X/DAY (Q8H USING A 2?H INFUSION, LESS THAN 7 DAYS)

REACTIONS (1)
  - Drug ineffective [Fatal]
